FAERS Safety Report 4414790-5 (Version None)
Quarter: 2004Q3

REPORT INFORMATION
  Report Type: 
  Country: None (occurrence: None)
  Receive Date: 20040804
  Receipt Date: 20031003
  Transmission Date: 20050211
  Serious: No
  Sender: FDA-Public Use
  Company Number: US-BRISTOL-MYERS SQUIBB COMPANY-12400701

PATIENT
  Age: 60 Year
  Sex: Female
  Weight: 62 kg

DRUGS (3)
  1. GLUCOVANCE [Suspect]
     Indication: DIABETES MELLITUS
     Dosage: DOSAGE FORM = TABLET = 5 MG/500 MG
     Route: 048
     Dates: start: 20030917, end: 20031002
  2. PLAVIX [Suspect]
     Indication: TRANSIENT ISCHAEMIC ATTACK
     Route: 048
     Dates: start: 20030917
  3. ASPIRIN [Concomitant]
     Dosage: PATIENT ON 325MG DAILY UNTIL 17-SEP-2003 WHEN DECREASED TO 81 MG DAILY

REACTIONS (2)
  - EYE PAIN [None]
  - VISION BLURRED [None]
